FAERS Safety Report 17055480 (Version 1)
Quarter: 2019Q4

REPORT INFORMATION
  Report Type: Spontaneous
  Country: IN (occurrence: IN)
  Receive Date: 20191120
  Receipt Date: 20191120
  Transmission Date: 20200122
  Serious: Yes (Other)
  Sender: FDA-Public Use
  Company Number: IN-PFIZER INC-2019491785

PATIENT
  Age: 30 Year
  Sex: Male

DRUGS (1)
  1. ATGAM [Suspect]
     Active Substance: EQUINE THYMOCYTE IMMUNE GLOBULIN
     Indication: APLASTIC ANAEMIA
     Dosage: 48 DF, UNK
     Route: 048
     Dates: start: 20191108

REACTIONS (3)
  - Pneumonia [Unknown]
  - Platelet count decreased [Unknown]
  - Pyrexia [Unknown]
